FAERS Safety Report 8970267 (Version 1)
Quarter: 2012Q4

REPORT INFORMATION
  Report Type: 
  Country: US (occurrence: US)
  Receive Date: 20121218
  Receipt Date: 20121218
  Transmission Date: 20130627
  Serious: Yes (Other)
  Sender: FDA-Public Use
  Company Number: US-BRISTOL-MYERS SQUIBB COMPANY-17032525

PATIENT
  Age: 10 Year
  Sex: Female

DRUGS (2)
  1. ABILIFY [Suspect]
     Indication: IRRITABILITY
     Dosage: Increased to 5mg.
Between it was stopped again started
  2. ABILIFY [Suspect]
     Indication: AGGRESSION
     Dosage: Increased to 5mg.
Between it was stopped again started

REACTIONS (2)
  - Hepatic enzyme increased [Unknown]
  - Weight increased [Unknown]
